FAERS Safety Report 5044854-7 (Version None)
Quarter: 2006Q2

REPORT INFORMATION
  Report Type: 
  Country: None (occurrence: None)
  Receive Date: 20060601
  Receipt Date: 20060307
  Transmission Date: 20061013
  Serious: No
  Sender: FDA-Public Use
  Company Number: 2006-BP-01437BP

PATIENT
  Age: 87 Year
  Sex: Female

DRUGS (10)
  1. SPIRIVA [Suspect]
     Indication: CHRONIC OBSTRUCTIVE PULMONARY DISEASE
     Dosage: 18 MCG (18 MCG,1 IN 1 D),IH
     Dates: start: 20060127, end: 20060207
  2. SPIRIVA [Suspect]
     Indication: DYSPNOEA
     Dosage: 18 MCG (18 MCG,1 IN 1 D),IH
     Dates: start: 20060127, end: 20060207
  3. DUONEB (COMBIVENT /01261001/) [Concomitant]
  4. HYZAAR [Concomitant]
  5. ADVAIR (SERETIDE /01420901/) [Concomitant]
  6. ASPIRIN [Concomitant]
  7. NEXIUM [Concomitant]
  8. LEXAPRO [Concomitant]
  9. PROVENTIL [Concomitant]
  10. FUROSEMIDE [Concomitant]

REACTIONS (3)
  - GINGIVAL PAIN [None]
  - GLOSSODYNIA [None]
  - ORAL PAIN [None]
